FAERS Safety Report 5678834-5 (Version None)
Quarter: 2008Q1

REPORT INFORMATION
  Report Type: 
  Country: None (occurrence: None)
  Receive Date: 20080324
  Receipt Date: 20080324
  Transmission Date: 20080703
  Serious: Yes (Hospitalization)
  Sender: FDA-Public Use
  Company Number: None

PATIENT
  Age: 69 Year
  Sex: Male
  Weight: 84 kg

DRUGS (1)
  1. GEMCITABINE [Suspect]
     Indication: NEOPLASM
     Dosage: 2400MG ONCE IV
     Route: 042
     Dates: start: 20080219, end: 20080219

REACTIONS (1)
  - FEBRILE NEUTROPENIA [None]
